FAERS Safety Report 7366725-3 (Version None)
Quarter: 2011Q1

REPORT INFORMATION
  Report Type: 
  Country: None (occurrence: None)
  Receive Date: 20110322
  Receipt Date: 20110314
  Transmission Date: 20110831
  Serious: Yes (Other)
  Sender: FDA-Public Use
  Company Number: US-ROCHE-610571

PATIENT
  Sex: Female
  Weight: 48.5 kg

DRUGS (1)
  1. ACCUTANE [Suspect]
     Dosage: ACCUTANE 40 MG MONDAY,WEDNESDAY AND FRIDAY.
     Route: 065
     Dates: start: 20020220, end: 20020320

REACTIONS (7)
  - COLITIS ULCERATIVE [None]
  - ABNORMAL FAECES [None]
  - APHTHOUS STOMATITIS [None]
  - CHOLANGITIS SCLEROSING [None]
  - ILEITIS [None]
  - INFLAMMATORY BOWEL DISEASE [None]
  - POUCHITIS [None]
